FAERS Safety Report 19436896 (Version 1)
Quarter: 2021Q2

REPORT INFORMATION
  Report Type: Report from Study
  Country: US (occurrence: US)
  Receive Date: 20210618
  Receipt Date: 20210618
  Transmission Date: 20210717
  Serious: Yes (Other)
  Sender: FDA-Public Use
  Company Number: US-BAYER-2021-145509

PATIENT
  Age: 52 Year
  Sex: Female

DRUGS (1)
  1. STIVARGA [Suspect]
     Active Substance: REGORAFENIB
     Indication: COLORECTAL CANCER
     Dosage: 120 MG DAILY WITH LOW FAT BREAKFAST FOR 3 WEEKS ON AND 1 WEEK OFF
     Route: 048
     Dates: start: 20210510

REACTIONS (6)
  - Neuropathy peripheral [Not Recovered/Not Resolved]
  - Dry skin [Not Recovered/Not Resolved]
  - Hypogeusia [Not Recovered/Not Resolved]
  - Pre-existing condition improved [Recovering/Resolving]
  - Off label use [None]
  - Decreased appetite [Not Recovered/Not Resolved]

NARRATIVE: CASE EVENT DATE: 20210510
